FAERS Safety Report 16657319 (Version 1)
Quarter: 2019Q3

REPORT INFORMATION
  Report Type: Spontaneous
  Country: US (occurrence: US)
  Receive Date: 20190801
  Receipt Date: 20190801
  Transmission Date: 20191004
  Serious: No
  Sender: FDA-Public Use
  Company Number: None

PATIENT
  Age: 61 Year
  Sex: Male

DRUGS (7)
  1. PHENYTOIN. [Concomitant]
     Active Substance: PHENYTOIN
     Dates: start: 20181010
  2. RISPERIDONE. [Concomitant]
     Active Substance: RISPERIDONE
  3. HALOPERIDOL. [Concomitant]
     Active Substance: HALOPERIDOL
  4. MIRTAZAPINE. [Concomitant]
     Active Substance: MIRTAZAPINE
  5. OLANZAPINE. [Concomitant]
     Active Substance: OLANZAPINE
  6. FLUPHENAZINE [Concomitant]
     Active Substance: FLUPHENAZINE
  7. KEPPRA [Suspect]
     Active Substance: LEVETIRACETAM
     Indication: MENTAL DISORDER
     Route: 048
     Dates: start: 20181010

REACTIONS (4)
  - Confusional state [None]
  - Hostility [None]
  - Aggression [None]
  - Abnormal behaviour [None]

NARRATIVE: CASE EVENT DATE: 20181115
